FAERS Safety Report 8415856-5 (Version None)
Quarter: 2012Q2

REPORT INFORMATION
  Report Type: 
  Country: None (occurrence: None)
  Receive Date: 20120606
  Receipt Date: 20120604
  Transmission Date: 20120825
  Serious: Yes (Other)
  Sender: FDA-Public Use
  Company Number: US-BAYER-2012-040277

PATIENT
  Age: 34 Year
  Sex: Female

DRUGS (1)
  1. MIRENA [Suspect]
     Indication: MENORRHAGIA
     Dosage: 20 MCG/24HR, CONT
     Route: 015
     Dates: start: 20120416, end: 20120423

REACTIONS (7)
  - VAGINAL ODOUR [None]
  - PAIN [None]
  - PATIENT-DEVICE INCOMPATIBILITY [None]
  - DEVICE EXPULSION [None]
  - ABDOMINAL PAIN LOWER [None]
  - INFECTION [None]
  - VAGINAL HAEMORRHAGE [None]
